FAERS Safety Report 12596508 (Version 1)
Quarter: 2016Q3

REPORT INFORMATION
  Report Type: Report from Study
  Country: GB (occurrence: GB)
  Receive Date: 20160727
  Receipt Date: 20160727
  Transmission Date: 20161109
  Serious: Yes (Death, Life-Threatening)
  Sender: FDA-Public Use
  Company Number: GB-ROCHE-793353

PATIENT
  Age: 65 Year
  Sex: Male
  Weight: 88.3 kg

DRUGS (5)
  1. PEGASPARGASE [Suspect]
     Active Substance: PEGASPARGASE
     Indication: ACUTE LYMPHOCYTIC LEUKAEMIA
     Dosage: TO BE GIVEN ON DAY 4 AND DAY 18.
     Route: 042
     Dates: start: 20110710, end: 20110710
  2. RITUXIMAB [Suspect]
     Active Substance: RITUXIMAB
     Dosage: TO BE GIVEN ON: DAY 3.
     Route: 042
     Dates: start: 20110709, end: 20110709
  3. AMBISOME [Concomitant]
     Active Substance: AMPHOTERICIN B
     Indication: SEPSIS
     Dosage: MONDAY, WEDNESDAY, FRIDAY
     Route: 042
     Dates: start: 20110701
  4. RITUXIMAB [Suspect]
     Active Substance: RITUXIMAB
     Indication: ACUTE LYMPHOCYTIC LEUKAEMIA
     Dosage: DAY 3
     Route: 042
     Dates: start: 20110707, end: 20110715
  5. RITUXIMAB [Suspect]
     Active Substance: RITUXIMAB
     Route: 042

REACTIONS (2)
  - Sepsis [Not Recovered/Not Resolved]
  - Hepatic failure [Fatal]

NARRATIVE: CASE EVENT DATE: 20110708
